FAERS Safety Report 6159019-5 (Version None)
Quarter: 2009Q2

REPORT INFORMATION
  Report Type: 
  Country: None (occurrence: None)
  Receive Date: 20090417
  Receipt Date: 20090407
  Transmission Date: 20091009
  Serious: Yes (Hospitalization)
  Sender: FDA-Public Use
  Company Number: FR-PFIZER INC-2009194420

PATIENT

DRUGS (6)
  1. LYRICA [Suspect]
     Indication: NEURALGIA
     Dosage: 25 MG, 1X/DAY
     Dates: start: 20090330, end: 20090403
  2. TAHOR [Concomitant]
  3. SPAGULAX [Concomitant]
  4. IMPORTAL [Concomitant]
  5. ZOLPIDEM [Concomitant]
  6. LEVOTHYROXINE SODIUM [Concomitant]

REACTIONS (1)
  - TACHYCARDIA [None]
